FAERS Safety Report 24262262 (Version 1)
Quarter: 2024Q3

REPORT INFORMATION
  Report Type: Spontaneous
  Country: PT (occurrence: PT)
  Receive Date: 20240829
  Receipt Date: 20240829
  Transmission Date: 20241016
  Serious: Yes (Death, Hospitalization)
  Sender: STRIDES
  Company Number: PT-STRIDES ARCOLAB LIMITED-2024SP010793

PATIENT
  Age: 94 Year
  Sex: Female

DRUGS (16)
  1. IBUPROFEN [Suspect]
     Active Substance: IBUPROFEN
     Indication: Central pain syndrome
     Dosage: 400 MILLIGRAM, TID
     Route: 065
  2. ACETAMINOPHEN [Suspect]
     Active Substance: ACETAMINOPHEN
     Indication: Central pain syndrome
     Dosage: 1000 MILLIGRAM, TID
     Route: 065
  3. BUTYLSCOPOLAMINE [Suspect]
     Active Substance: BUTYLSCOPOLAMINE
     Indication: Central pain syndrome
     Dosage: 160 MILLIGRAM; 48-HOUR CONTINUOUS SUBCUTANEOUS INFUSION USING AN ELASTOMERIC INFUSION PUMP (SCEIP)
     Route: 058
  4. MORPHINE [Suspect]
     Active Substance: MORPHINE
     Indication: Central pain syndrome
     Dosage: 20 MILLIGRAM, BID; 48-HOUR CONTINUOUS SUBCUTANEOUS INFUSION USING AN ELASTOMERIC INFUSION PUMP (SCEI
     Route: 058
  5. MORPHINE [Suspect]
     Active Substance: MORPHINE
     Dosage: 2.5 MILLIGRAM, PRN
     Route: 058
  6. MORPHINE [Suspect]
     Active Substance: MORPHINE
     Dosage: UNK;INCREASED DOSE
     Route: 058
  7. MORPHINE [Suspect]
     Active Substance: MORPHINE
     Dosage: UNK, PRN, DOSE INCREASED
     Route: 058
  8. MORPHINE [Suspect]
     Active Substance: MORPHINE
     Dosage: 10 MILLIGRAM, QD
     Route: 058
  9. MIDAZOLAM [Suspect]
     Active Substance: MIDAZOLAM
     Indication: Central pain syndrome
     Dosage: 7.5 MILLIGRAM;48-HOUR CONTINUOUS SUBCUTANEOUS INFUSION USING AN ELASTOMERIC INFUSION PUMP (SCEIP)
     Route: 058
  10. MIDAZOLAM [Suspect]
     Active Substance: MIDAZOLAM
     Dosage: UNK; INCREASED DOSE
     Route: 058
  11. MIDAZOLAM [Suspect]
     Active Substance: MIDAZOLAM
     Dosage: UNK, PRN
     Route: 058
  12. MIDAZOLAM [Suspect]
     Active Substance: MIDAZOLAM
     Dosage: 2.5 MILLIGRAM;BOLUS
     Route: 058
  13. MIDAZOLAM [Suspect]
     Active Substance: MIDAZOLAM
     Dosage: UNK;LOW DOSE
     Route: 065
  14. KETAMINE [Suspect]
     Active Substance: KETAMINE
     Indication: Central pain syndrome
     Dosage: 100 MILLIGRAM, QD
     Route: 058
  15. KETAMINE [Suspect]
     Active Substance: KETAMINE
     Dosage: 300 MILLIGRAM;PER 48 HOURS
     Route: 058
  16. KETAMINE [Suspect]
     Active Substance: KETAMINE
     Dosage: 400 MILLIGRAM;PER 48 HOURS.
     Route: 058

REACTIONS (3)
  - Death [Fatal]
  - Therapy non-responder [Unknown]
  - Off label use [Unknown]
